FAERS Safety Report 25064236 (Version 2)
Quarter: 2025Q1

REPORT INFORMATION
  Report Type: Spontaneous
  Country: US (occurrence: US)
  Receive Date: 20250311
  Receipt Date: 20250313
  Transmission Date: 20250409
  Serious: Yes (Life-Threatening, Hospitalization)
  Sender: PFIZER
  Company Number: US-MLMSERVICE-20250226-PI430485-00312-1

PATIENT
  Age: 41 Year
  Sex: Male

DRUGS (1)
  1. TESTOSTERONE CYPIONATE [Suspect]
     Active Substance: TESTOSTERONE CYPIONATE
     Indication: Blood testosterone decreased
     Dosage: INJECTED WEEKLY
     Route: 058

REACTIONS (2)
  - Incorrect route of product administration [Unknown]
  - Hair follicle tumour benign [Unknown]

NARRATIVE: CASE EVENT DATE: 20240101
